FAERS Safety Report 6210808-8 (Version None)
Quarter: 2009Q2

REPORT INFORMATION
  Report Type: 
  Country: None (occurrence: None)
  Receive Date: 20090601
  Receipt Date: 20090518
  Transmission Date: 20091009
  Serious: Yes (Hospitalization)
  Sender: FDA-Public Use
  Company Number: AU-MYLANLABS-2009S1008792

PATIENT
  Age: 25 Year
  Sex: Female

DRUGS (5)
  1. LAMOTRIGINE [Suspect]
     Indication: EPILEPSY
     Dosage: 25 MG/DAY
  2. AMOXICILLIN [Concomitant]
     Indication: SINUSITIS
  3. PHENYTOIN [Concomitant]
     Indication: EPILEPSY
  4. RABEPRAZOLE SODIUM [Concomitant]
  5. EUGYNON                            /00022701/ [Concomitant]

REACTIONS (1)
  - MENINGITIS ASEPTIC [None]
